FAERS Safety Report 9806518 (Version 1)
Quarter: 2014Q1

REPORT INFORMATION
  Report Type: Spontaneous
  Country: GB (occurrence: GB)
  Receive Date: 20140109
  Receipt Date: 20140109
  Transmission Date: 20141002
  Serious: Yes (Other)
  Sender: FDA-Public Use
  Company Number: GB-ACTAVIS-2013-24187

PATIENT
  Age: 53 Year
  Sex: Female
  Weight: 88 kg

DRUGS (4)
  1. DOXYCYCLINE HYCLATE [Suspect]
     Indication: SINUSITIS
     Dosage: 100 MG, BID; TWO CAPSULES STRAIGHT AWAY THEN ONE DAILY
     Route: 048
     Dates: start: 20131203, end: 20131203
  2. DOXYCYCLINE HYCLATE [Suspect]
     Dosage: 100 MG, DAILY; TWO CAPSULES STRAIGHT AWAY THEN ONE DAILY
     Route: 048
     Dates: start: 20131204, end: 20131209
  3. AMOXYCILLIN                        /00249601/ [Concomitant]
     Indication: PRODUCT USED FOR UNKNOWN INDICATION
     Dosage: UNK
     Route: 065
  4. NORIDAY                            /00044901/ [Concomitant]
     Indication: PRODUCT USED FOR UNKNOWN INDICATION
     Dosage: UNK
     Route: 065

REACTIONS (6)
  - Tremor [Not Recovered/Not Resolved]
  - Anxiety [Recovering/Resolving]
  - Panic attack [Recovering/Resolving]
  - Dissociation [Not Recovered/Not Resolved]
  - Feeling abnormal [Not Recovered/Not Resolved]
  - Decreased appetite [Not Recovered/Not Resolved]
